FAERS Safety Report 7978606-2 (Version None)
Quarter: 2011Q4

REPORT INFORMATION
  Report Type: 
  Country: None (occurrence: None)
  Receive Date: 20111202
  Receipt Date: 20111117
  Transmission Date: 20120403
  Serious: Yes (Life-Threatening, Hospitalization, Other)
  Sender: FDA-Public Use
  Company Number: ACO_27257_2011

PATIENT
  Age: 68 Year
  Sex: Male

DRUGS (13)
  1. CALCIVIT D (CALCIUM CARBONATE, COLECALCIFEROL) [Concomitant]
  2. VITAMIN C /00008001/ (ASCORBIC ACID) [Concomitant]
  3. ALENDRONATE SODIUM/CHOLECALCIFEROL [Concomitant]
  4. VITAMIN B-12 [Concomitant]
  5. VIGANTOLETTEN (COLECALCIFEROL) [Concomitant]
  6. SELEN /00075001/ (SELENIUM) [Concomitant]
  7. CALCICARE (CALCIUM GLUBIONATE, COLECALCIFEROL) [Concomitant]
  8. ZINKOROTAT (ZINC OROTATE) [Concomitant]
  9. L-CARN (LEVOCARNITINE) [Concomitant]
  10. COENZYME Q10 [Concomitant]
  11. PROSTAGUTT (POPULUS SPP.EXTRACT,SERENOA REPENS EXTRACT,URTICA SPP.EXTR [Concomitant]
  12. FAMPYRA (DALFAMPRIDINE) TABLET [Suspect]
     Indication: GAIT DISTURBANCE
     Dosage: 10 MG, BID, ORAL
     Route: 048
     Dates: start: 20110922, end: 20111001
  13. VASO-LOGES (HOMOCYSTEINE THIOLACTONE) [Concomitant]

REACTIONS (5)
  - CORONARY ARTERY DISEASE [None]
  - ACUTE MYOCARDIAL INFARCTION [None]
  - CONVULSION [None]
  - VENTRICULAR FIBRILLATION [None]
  - DRUG EFFECT DECREASED [None]
